FAERS Safety Report 7515821-6 (Version None)
Quarter: 2011Q2

REPORT INFORMATION
  Report Type: 
  Country: None (occurrence: None)
  Receive Date: 20110601
  Receipt Date: 20110520
  Transmission Date: 20111010
  Serious: Yes (Hospitalization)
  Sender: FDA-Public Use
  Company Number: US-MUTUAL PHARMACEUTICAL COMPANY, INC.-CLCY20110062

PATIENT
  Age: 25 Year
  Sex: Female

DRUGS (1)
  1. COLCRYS [Suspect]
     Indication: FAMILIAL MEDITERRANEAN FEVER
     Route: 065
     Dates: start: 20110101, end: 20110101

REACTIONS (3)
  - FAMILIAL MEDITERRANEAN FEVER [None]
  - DRUG INEFFECTIVE [None]
  - DEHYDRATION [None]
